FAERS Safety Report 21025692 (Version 4)
Quarter: 2023Q4

REPORT INFORMATION
  Report Type: Other
  Country: CO (occurrence: CO)
  Receive Date: 20220630
  Receipt Date: 20231214
  Transmission Date: 20240110
  Serious: Yes (Other)
  Sender: FDA-Public Use
  Company Number: CO-TOLMAR, INC.-22CO035090

PATIENT
  Age: 64 Year
  Sex: Male

DRUGS (3)
  1. ELIGARD [Suspect]
     Active Substance: LEUPROLIDE ACETATE
     Indication: Prostate cancer
     Dosage: 45 MILLIGRAM, Q 6 MONTH
     Route: 058
     Dates: start: 20211112, end: 202311
  2. RADIATION THERAPY [Suspect]
     Active Substance: RADIATION THERAPY
     Indication: Product used for unknown indication
     Dosage: UNK
     Dates: start: 202202
  3. SILDENAFIL [Concomitant]
     Active Substance: SILDENAFIL
     Indication: Erectile dysfunction
     Dosage: 100 MILLIGRAM

REACTIONS (8)
  - Erectile dysfunction [Not Recovered/Not Resolved]
  - Urinary retention [Not Recovered/Not Resolved]
  - Cystitis radiation [Not Recovered/Not Resolved]
  - Abdominal distension [Not Recovered/Not Resolved]
  - Influenza [Not Recovered/Not Resolved]
  - Cystitis [Not Recovered/Not Resolved]
  - Urinary tract infection [Recovering/Resolving]
  - Loss of libido [Unknown]

NARRATIVE: CASE EVENT DATE: 20220401
